FAERS Safety Report 24011957 (Version 1)
Quarter: 2024Q2

REPORT INFORMATION
  Report Type: Spontaneous
  Country: US (occurrence: US)
  Receive Date: 20240625
  Receipt Date: 20240625
  Transmission Date: 20240716
  Serious: No
  Sender: FDA-Public Use
  Company Number: US-SA-SAC20240614000676

PATIENT
  Age: 77 Year
  Sex: Female

DRUGS (1)
  1. DUPIXENT [Suspect]
     Active Substance: DUPILUMAB
     Indication: Eosinophilic oesophagitis
     Dosage: 300 MG, QW
     Route: 058
     Dates: start: 20240520, end: 20240603

REACTIONS (5)
  - Arthralgia [Recovering/Resolving]
  - Oral pain [Recovering/Resolving]
  - Mouth ulceration [Recovering/Resolving]
  - Pain in jaw [Recovering/Resolving]
  - Loose tooth [Unknown]

NARRATIVE: CASE EVENT DATE: 20240101
